FAERS Safety Report 9586340 (Version 2)
Quarter: 2013Q4

REPORT INFORMATION
  Report Type: Report from Study
  Country: CA (occurrence: CA)
  Receive Date: 20131003
  Receipt Date: 20131114
  Transmission Date: 20140711
  Serious: Yes (Death, Other)
  Sender: FDA-Public Use
  Company Number: PHHY2013CA109935

PATIENT
  Age: 75 Year
  Sex: Female

DRUGS (4)
  1. CLOZARIL [Suspect]
     Indication: DELUSION
     Dosage: 225 MG, QD
     Route: 048
     Dates: start: 20100122
  2. CLOZARIL [Suspect]
     Dosage: UNK
     Route: 048
     Dates: start: 20100225
  3. CIPRALEX                                /DEN/ [Concomitant]
     Dosage: 15 MG, QD
  4. RISPERDAL [Concomitant]
     Dosage: 0.5 MG, BID

REACTIONS (3)
  - Death [Fatal]
  - Biliary colic [Unknown]
  - Pain [Unknown]
